FAERS Safety Report 5019569-1 (Version None)
Quarter: 2006Q2

REPORT INFORMATION
  Report Type: 
  Country: None (occurrence: None)
  Receive Date: 20060531
  Receipt Date: 20060526
  Transmission Date: 20061013
  Serious: Yes (Other)
  Sender: FDA-Public Use
  Company Number: 200610279BVD

PATIENT

DRUGS (3)
  1. CIPROFLOXACIN HCL [Suspect]
     Indication: PERITONITIS BACTERIAL
     Dosage: 500 MG, BID, ORAL
     Route: 048
     Dates: start: 20060110, end: 20060118
  2. CIPROFLOXACIN HCL [Suspect]
     Indication: URINARY TRACT INFECTION
     Dosage: 500 MG, BID, ORAL
     Route: 048
     Dates: start: 20060110, end: 20060118
  3. LYRICA [Concomitant]

REACTIONS (2)
  - ASTERIXIS [None]
  - MYOCLONUS [None]
